FAERS Safety Report 11427397 (Version 1)
Quarter: 2015Q3

REPORT INFORMATION
  Report Type: Spontaneous
  Country: US (occurrence: US)
  Receive Date: 20150827
  Receipt Date: 20150827
  Transmission Date: 20151125
  Serious: No
  Sender: FDA-Public Use
  Company Number: US-SA-2015SA103722

PATIENT
  Age: 71 Year
  Sex: Female

DRUGS (2)
  1. FABRAZYME [Suspect]
     Active Substance: AGALSIDASE BETA
     Dosage: 35 MG AND 5 MG
     Route: 041
     Dates: start: 20121107
  2. FABRAZYME [Suspect]
     Active Substance: AGALSIDASE BETA
     Dosage: 35 MG AND 5 MG
     Route: 041
     Dates: start: 20121107

REACTIONS (1)
  - Incorrect dose administered [Unknown]

NARRATIVE: CASE EVENT DATE: 20150713
